FAERS Safety Report 15137870 (Version 2)
Quarter: 2018Q3

REPORT INFORMATION
  Report Type: Report from Study
  Country: CA (occurrence: CA)
  Receive Date: 20180712
  Receipt Date: 20180716
  Transmission Date: 20181010
  Serious: No
  Sender: FDA-Public Use
  Company Number: CA-BEH-2018092574

PATIENT
  Age: 53 Year
  Sex: Female
  Weight: 70 kg

DRUGS (9)
  1. BERINERT [Suspect]
     Active Substance: HUMAN C1-ESTERASE INHIBITOR
     Indication: HEREDITARY ANGIOEDEMA
     Dosage: 1500 IU, TOT
     Route: 042
     Dates: start: 20180706, end: 20180706
  2. BILASTINE [Concomitant]
     Active Substance: BILASTINE
  3. SERAX [Concomitant]
     Active Substance: OXAZEPAM
  4. SYNTHROID [Concomitant]
     Active Substance: LEVOTHYROXINE SODIUM
  5. SUPEUDOL [Concomitant]
     Active Substance: OXYCODONE HYDROCHLORIDE
  6. FENTANYL                           /00174602/ [Concomitant]
     Active Substance: FENTANYL
  7. XANAX [Concomitant]
     Active Substance: ALPRAZOLAM
  8. CIPRALEX [Concomitant]
     Active Substance: ESCITALOPRAM OXALATE
  9. BERINERT [Suspect]
     Active Substance: HUMAN C1-ESTERASE INHIBITOR
     Dosage: 1500 IU, PRN
     Route: 042
     Dates: start: 20180627

REACTIONS (5)
  - Micturition urgency [Unknown]
  - Micturition urgency [Recovered/Resolved]
  - Urinary incontinence [Unknown]
  - Chills [Unknown]
  - Chills [Recovered/Resolved]

NARRATIVE: CASE EVENT DATE: 20180706
